FAERS Safety Report 5829039-6 (Version None)
Quarter: 2008Q3

REPORT INFORMATION
  Report Type: 
  Country: None (occurrence: None)
  Receive Date: 20080731
  Receipt Date: 20071102
  Transmission Date: 20090109
  Serious: No
  Sender: FDA-Public Use
  Company Number: US-BRISTOL-MYERS SQUIBB COMPANY-13967948

PATIENT
  Age: 43 Year
  Sex: Female

DRUGS (1)
  1. TEQUIN [Suspect]
     Dates: start: 20010924, end: 20060718

REACTIONS (1)
  - BLOOD GLUCOSE INCREASED [None]
